FAERS Safety Report 25358205 (Version 1)
Quarter: 2025Q2

REPORT INFORMATION
  Report Type: Spontaneous
  Country: JP (occurrence: JP)
  Receive Date: 20250526
  Receipt Date: 20250526
  Transmission Date: 20250717
  Serious: Yes (Hospitalization, Other)
  Sender: GLAXOSMITHKLINE
  Company Number: JP-GSK-JP2025JPN061817

PATIENT

DRUGS (15)
  1. VALACYCLOVIR HYDROCHLORIDE [Suspect]
     Active Substance: VALACYCLOVIR HYDROCHLORIDE
     Indication: Herpes simplex
     Dosage: 500 MG, BID
     Route: 048
     Dates: start: 20240510
  2. FEBUXOSTAT [Concomitant]
     Active Substance: FEBUXOSTAT
  3. EVOCALCET [Concomitant]
     Active Substance: EVOCALCET
  4. NEXIUM [Concomitant]
     Active Substance: ESOMEPRAZOLE MAGNESIUM
  5. ASPIRIN [Concomitant]
     Active Substance: ASPIRIN
  6. SENNOSIDES [Concomitant]
     Active Substance: SENNOSIDES
  7. REBAMIPIDE [Concomitant]
     Active Substance: REBAMIPIDE
  8. Lagnos nf [Concomitant]
  9. ENBREL [Concomitant]
     Active Substance: ETANERCEPT
  10. AMLODIPINE [Concomitant]
     Active Substance: AMLODIPINE BESYLATE
  11. CALCIUM POLYSTYRENE SULFONATE [Concomitant]
     Active Substance: CALCIUM POLYSTYRENE SULFONATE
     Dosage: 2 DF, TID
  12. RENAGEL [Concomitant]
     Active Substance: SEVELAMER HYDROCHLORIDE
     Dosage: 3000 MG, TID
  13. HERBALS [Concomitant]
     Active Substance: HERBALS
  14. SODIUM PICOSULFATE [Concomitant]
     Active Substance: SODIUM PICOSULFATE
  15. TRANILAST [Concomitant]
     Active Substance: TRANILAST

REACTIONS (10)
  - Toxic encephalopathy [Recovered/Resolved]
  - Hallucination, visual [Unknown]
  - Hallucination [Recovered/Resolved]
  - Loss of consciousness [Unknown]
  - Altered state of consciousness [Recovering/Resolving]
  - Headache [Unknown]
  - Head discomfort [Unknown]
  - Nausea [Unknown]
  - Prescribed overdose [Unknown]
  - Off label use [Unknown]

NARRATIVE: CASE EVENT DATE: 20240501
